FAERS Safety Report 21955178 (Version 2)
Quarter: 2023Q2

REPORT INFORMATION
  Report Type: Report from Study
  Country: CL (occurrence: CL)
  Receive Date: 20230206
  Receipt Date: 20230421
  Transmission Date: 20230721
  Serious: Yes (Hospitalization)
  Sender: FDA-Public Use
  Company Number: CL-002147023-NVSC2023CL022966

PATIENT
  Age: 13 Year
  Sex: Male
  Weight: 30 kg

DRUGS (1)
  1. OMNITROPE [Suspect]
     Active Substance: SOMATROPIN
     Indication: Growth hormone deficiency
     Dosage: 5 MG/0.7 MG, QD (AMPOULE)
     Route: 058
     Dates: start: 20211023

REACTIONS (2)
  - Malnutrition [Unknown]
  - Underweight [Recovering/Resolving]

NARRATIVE: CASE EVENT DATE: 20220904
